FAERS Safety Report 21849041 (Version 1)
Quarter: 2023Q1

REPORT INFORMATION
  Report Type: Spontaneous
  Country: FR (occurrence: FR)
  Receive Date: 20230111
  Receipt Date: 20230111
  Transmission Date: 20230418
  Serious: Yes (Life-Threatening, Hospitalization)
  Sender: FDA-Public Use
  Company Number: None

PATIENT
  Age: 62 Year
  Sex: Female
  Weight: 98 kg

DRUGS (4)
  1. ROCURONIUM [Suspect]
     Active Substance: ROCURONIUM BROMIDE
     Indication: Laparoscopy
     Dosage: 100 MILLIGRAM, 1 TOTAL
     Route: 042
     Dates: start: 20210619, end: 20210619
  2. PROPOFOL [Concomitant]
     Active Substance: PROPOFOL
     Indication: Laparoscopy
     Dosage: 300 MILLIGRAM
     Route: 042
     Dates: start: 20210619, end: 20210619
  3. LIDOCAINE HYDROCHLORIDE [Concomitant]
     Active Substance: LIDOCAINE HYDROCHLORIDE
     Indication: Laparoscopy
     Dosage: 100 MILLIGRAM, 1 TOTAL
     Route: 042
     Dates: start: 20210619, end: 20210619
  4. KETAMINE [Concomitant]
     Active Substance: KETAMINE
     Indication: Laparoscopy
     Dosage: 20 MILLIGRAM, 1 TOTAL
     Route: 042
     Dates: start: 20210619, end: 20210619

REACTIONS (2)
  - Anaphylactic shock [Recovered/Resolved]
  - Allergy test positive [Recovered/Resolved]

NARRATIVE: CASE EVENT DATE: 20210619
